FAERS Safety Report 11829102 (Version 1)
Quarter: 2015Q4

REPORT INFORMATION
  Report Type: Spontaneous
  Country: US (occurrence: US)
  Receive Date: 20151211
  Receipt Date: 20151211
  Transmission Date: 20160305
  Serious: No
  Sender: FDA-Public Use
  Company Number: US-KYTHERA BIOPHARMACEUTICALS-KYT-2015-000028

PATIENT

DRUGS (1)
  1. KYBELLA [Suspect]
     Active Substance: DEOXYCHOLIC ACID
     Indication: FAT TISSUE INCREASED
     Dosage: UNK, ONE TIME DOSE
     Route: 058
     Dates: start: 20150831, end: 20150831

REACTIONS (3)
  - Injection site swelling [Recovered/Resolved]
  - Lipoatrophy [Unknown]
  - Neck pain [Unknown]

NARRATIVE: CASE EVENT DATE: 20050831
